FAERS Safety Report 24892948 (Version 3)
Quarter: 2025Q2

REPORT INFORMATION
  Report Type: Report from Study
  Country: CO (occurrence: CO)
  Receive Date: 20250128
  Receipt Date: 20250404
  Transmission Date: 20250717
  Serious: Yes (Hospitalization, Other)
  Sender: TAKEDA
  Company Number: CO-TAKEDA-2025TUS008698

PATIENT
  Age: 58 Year
  Sex: Male
  Weight: 49 kg

DRUGS (3)
  1. VEDOLIZUMAB [Suspect]
     Active Substance: VEDOLIZUMAB
     Indication: Colitis ulcerative
  2. VEDOLIZUMAB [Suspect]
     Active Substance: VEDOLIZUMAB
     Dosage: 300 MILLIGRAM, Q2WEEKS
  3. VEDOLIZUMAB [Suspect]
     Active Substance: VEDOLIZUMAB
     Dosage: 300 MILLIGRAM, Q4WEEKS
     Dates: end: 20250131

REACTIONS (10)
  - Colitis ulcerative [Unknown]
  - Intestinal obstruction [Unknown]
  - Rectal ulcer [Unknown]
  - Large intestinal ulcer [Unknown]
  - Frequent bowel movements [Unknown]
  - Weight decreased [Unknown]
  - Drug ineffective [Unknown]
  - Off label use [Unknown]
  - Abdominal pain [Unknown]
  - Medication error [Recovered/Resolved]

NARRATIVE: CASE EVENT DATE: 20250306
